FAERS Safety Report 5490391-5 (Version None)
Quarter: 2007Q4

REPORT INFORMATION
  Report Type: 
  Country: None (occurrence: None)
  Receive Date: 20071019
  Receipt Date: 20071011
  Transmission Date: 20080405
  Serious: Yes (Hospitalization, Other)
  Sender: FDA-Public Use
  Company Number: PHBS2007BR17084

PATIENT
  Age: 71 Year
  Sex: Female
  Weight: 70 kg

DRUGS (3)
  1. DIOVAN [Suspect]
     Indication: HYPERTENSION
     Dosage: 160 MG/DAY
     Route: 048
     Dates: start: 20060901
  2. GARDAN TAB [Concomitant]
     Dosage: 1 TABLET/DAY
     Route: 048
     Dates: start: 19980101
  3. AROPAX [Concomitant]
     Indication: DEPRESSION
     Dosage: 1 TABLET/DAY
     Route: 048
     Dates: start: 20010101

REACTIONS (3)
  - DEPRESSION [None]
  - DYSPHAGIA [None]
  - THERAPEUTIC PROCEDURE [None]
